FAERS Safety Report 24290289 (Version 1)
Quarter: 2024Q3

REPORT INFORMATION
  Report Type: Spontaneous
  Country: PT (occurrence: PT)
  Receive Date: 20240906
  Receipt Date: 20240906
  Transmission Date: 20241016
  Serious: Yes (Other)
  Sender: AUROBINDO
  Company Number: PT-ETHYPHARM-2024002321

PATIENT
  Age: 57 Year
  Sex: Female

DRUGS (1)
  1. ZOLEDRONIC ACID [Suspect]
     Active Substance: ZOLEDRONIC ACID
     Indication: Product used for unknown indication
     Dosage: 5 MILLIGRAM
     Route: 042

REACTIONS (2)
  - Headache [Recovering/Resolving]
  - Parophthalmia [Recovering/Resolving]
